FAERS Safety Report 8016828-5 (Version None)
Quarter: 2012Q1

REPORT INFORMATION
  Report Type: 
  Country: None (occurrence: None)
  Receive Date: 20120102
  Receipt Date: 20111226
  Transmission Date: 20120608
  Serious: Yes (Hospitalization)
  Sender: FDA-Public Use
  Company Number: NZ-COVIDIEN/TYCO HEALTHCARE/MALLINCKRODT-T201102935

PATIENT
  Age: 72 Year
  Sex: Female

DRUGS (7)
  1. OMEPRAZOLE [Concomitant]
     Dosage: 20 MG, QD
  2. ENALAPRIL MALEATE [Suspect]
     Dosage: 5 MG, QD
  3. METFORMIN HCL [Suspect]
     Dosage: 850 MG, Q 12 HOURS
  4. PENNSAID [Suspect]
     Dosage: UNK
  5. FUROSEMIDE [Concomitant]
     Dosage: 20 MG, QD
  6. METOCLOPRAMIDE [Suspect]
     Dosage: UNK
  7. ACETYLSALICYLIC ACID SRT [Concomitant]
     Dosage: 100 MG, QD

REACTIONS (2)
  - RENAL FAILURE [None]
  - LACTIC ACIDOSIS [None]
